FAERS Safety Report 5950063-7 (Version None)
Quarter: 2008Q4

REPORT INFORMATION
  Report Type: 
  Country: None (occurrence: None)
  Receive Date: 20081021
  Receipt Date: 20071112
  Transmission Date: 20090506
  Serious: Yes (Other)
  Sender: FDA-Public Use
  Company Number: HQWYE394022OCT03

PATIENT
  Age: 56 Year
  Sex: Female

DRUGS (4)
  1. PREMARIN [Suspect]
     Dosage: UNSPECIFIED DAILY FOR A NUMBER OF YEARS, ORAL
     Route: 048
  2. CLIMARA [Suspect]
  3. OGEN [Suspect]
  4. PROVERA [Suspect]

REACTIONS (2)
  - BENIGN BREAST NEOPLASM [None]
  - BREAST CANCER [None]
